FAERS Safety Report 6030207-1 (Version None)
Quarter: 2009Q1

REPORT INFORMATION
  Report Type: 
  Country: None (occurrence: None)
  Receive Date: 20090107
  Receipt Date: 20080902
  Transmission Date: 20090719
  Serious: No
  Sender: FDA-Public Use
  Company Number: US-BAYER-200813627BCC

PATIENT
  Age: 66 Year
  Sex: Female

DRUGS (12)
  1. ALEVE (CAPLET) [Suspect]
     Indication: HEADACHE
     Dosage: TOTAL DAILY DOSE: 440 MG  UNIT DOSE: 220 MG
     Dates: start: 20080801, end: 20080801
  2. GARLIC SUPPLEMENT [Concomitant]
  3. FISH OIL [Concomitant]
  4. NIACIN [Concomitant]
  5. VITAMIN E [Concomitant]
  6. VITAMIN B1 TAB [Concomitant]
  7. VITAMIN B-12 [Concomitant]
  8. VITAMIN B6 [Concomitant]
  9. CALCIUM SUPPLEMENT [Concomitant]
  10. BEE POLLEN [Concomitant]
  11. FOLIC ACID [Concomitant]
  12. CENTRUM SILVER [Concomitant]

REACTIONS (1)
  - ABDOMINAL PAIN UPPER [None]
